FAERS Safety Report 4290322-X (Version None)
Quarter: 2004Q1

REPORT INFORMATION
  Report Type: 
  Country: None (occurrence: None)
  Receive Date: 20040126
  Receipt Date: 20031119
  Transmission Date: 20041129
  Serious: No
  Sender: FDA-Public Use
  Company Number: USA030127125

PATIENT
  Age: 78 Year
  Sex: Female
  Weight: 52 kg

DRUGS (9)
  1. FORTEO [Suspect]
     Indication: OSTEOPOROSIS
     Dates: start: 20030124, end: 20030801
  2. EVISTA [Suspect]
     Dates: start: 19980101
  3. DIURIL (CHLOROTHIAZIDE) [Concomitant]
  4. NEURONTIN [Concomitant]
  5. POTASSIUM [Concomitant]
  6. TEMAZEPAM [Concomitant]
  7. HYDRODIURIL [Concomitant]
  8. HYALGAN (HYALURONIC ACID) [Concomitant]
  9. VITAMIN B-12 [Concomitant]

REACTIONS (27)
  - ACCIDENTAL NEEDLE STICK [None]
  - ARTHRALGIA [None]
  - ASTHENIA [None]
  - BACK PAIN [None]
  - CONSTIPATION [None]
  - FAECALOMA [None]
  - FEELING ABNORMAL [None]
  - GASTROINTESTINAL DISORDER [None]
  - INJECTION SITE BURNING [None]
  - INJECTION SITE ERYTHEMA [None]
  - INJECTION SITE HAEMORRHAGE [None]
  - INJECTION SITE INDURATION [None]
  - INJECTION SITE PAIN [None]
  - INJURY [None]
  - JOINT SWELLING [None]
  - LIMB DEFORMITY [None]
  - MEDICAL DEVICE COMPLICATION [None]
  - METABOLIC DISORDER [None]
  - MUSCLE CRAMP [None]
  - MUSCLE SPASMS [None]
  - MYALGIA [None]
  - NASOPHARYNGITIS [None]
  - OVERDOSE [None]
  - RASH [None]
  - UNDERDOSE [None]
  - URINE ANALYSIS ABNORMAL [None]
  - WEIGHT INCREASED [None]
